FAERS Safety Report 6821071-9 (Version None)
Quarter: 2010Q3

REPORT INFORMATION
  Report Type: 
  Country: None (occurrence: None)
  Receive Date: 20100707
  Receipt Date: 20070927
  Transmission Date: 20110219
  Serious: No
  Sender: FDA-Public Use
  Company Number: US-PFIZER INC-2007081874

PATIENT
  Sex: Male
  Weight: 65.909 kg

DRUGS (6)
  1. ZOLOFT [Suspect]
     Dates: start: 20070601
  2. KLONOPIN [Concomitant]
  3. METFORMIN HCL [Concomitant]
  4. CRESTOR [Concomitant]
  5. ACETYLSALICYLIC ACID [Concomitant]
  6. ELAVIL [Concomitant]

REACTIONS (2)
  - LETHARGY [None]
  - MUSCULAR WEAKNESS [None]
